FAERS Safety Report 21859730 (Version 1)
Quarter: 2023Q1

REPORT INFORMATION
  Report Type: Spontaneous
  Country: US (occurrence: US)
  Receive Date: 20230113
  Receipt Date: 20230113
  Transmission Date: 20230417
  Serious: Yes (Death, Hospitalization)
  Sender: FDA-Public Use
  Company Number: US-BAYER-2023A002825

PATIENT
  Age: 19 Year
  Sex: Male

DRUGS (2)
  1. ASPIRIN [Suspect]
     Active Substance: ASPIRIN
     Route: 045
  2. FENTANYL [Suspect]
     Active Substance: FENTANYL

REACTIONS (2)
  - Drug abuse [Fatal]
  - Toxicity to various agents [Fatal]
